FAERS Safety Report 23722876 (Version 1)
Quarter: 2024Q2

REPORT INFORMATION
  Report Type: Spontaneous
  Country: CN (occurrence: None)
  Receive Date: 20240409
  Receipt Date: 20240409
  Transmission Date: 20240715
  Serious: Yes (Life-Threatening, Other)
  Sender: FDA-Public Use
  Company Number: CN-ROCHE-3538456

PATIENT
  Age: 38 Year
  Sex: Female

DRUGS (5)
  1. ALECENSA [Suspect]
     Active Substance: ALECTINIB HYDROCHLORIDE
     Indication: Non-small cell lung cancer
     Route: 065
  2. DEXAMETHASONE [Concomitant]
     Active Substance: DEXAMETHASONE
     Dosage: START AT 23 WEEKS, 5 DAYS OF PREGNANCY, ENDED AT 28 WEEKS AND 4 DAYS OF PREGNANCY
     Route: 065
  3. CERITINIB [Concomitant]
     Active Substance: CERITINIB
     Indication: Non-small cell lung cancer
  4. BRIGATINIB [Concomitant]
     Active Substance: BRIGATINIB
     Indication: Non-small cell lung cancer
     Dosage: 90 MG IN FIRST THREE WEEKS, THEN 180 MG
  5. PREDNISONE [Concomitant]
     Active Substance: PREDNISONE

REACTIONS (12)
  - Hypoxia [Recovering/Resolving]
  - Hyperpyrexia [Recovering/Resolving]
  - Central nervous system necrosis [Recovered/Resolved]
  - Interstitial lung disease [Recovering/Resolving]
  - Blood brain barrier defect [Recovered/Resolved]
  - Psychomotor retardation [Recovering/Resolving]
  - Hepatic enzyme increased [Unknown]
  - Cognitive disorder [Recovered/Resolved]
  - Disturbance in attention [Recovered/Resolved]
  - Memory impairment [Recovered/Resolved]
  - Ill-defined disorder [Recovered/Resolved]
  - Dyscalculia [Recovered/Resolved]
